FAERS Safety Report 16377911 (Version 1)
Quarter: 2019Q2

REPORT INFORMATION
  Report Type: Spontaneous
  Country: JP (occurrence: JP)
  Receive Date: 20190531
  Receipt Date: 20190531
  Transmission Date: 20190711
  Serious: Yes (Hospitalization, Other)
  Sender: FDA-Public Use
  Company Number: JP-BRISTOL-MYERS SQUIBB COMPANY-BMS-2019-051722

PATIENT
  Sex: Female
  Weight: 56 kg

DRUGS (2)
  1. YERVOY [Suspect]
     Active Substance: IPILIMUMAB
     Indication: RENAL CELL CARCINOMA
     Route: 065
  2. OPDIVO [Suspect]
     Active Substance: NIVOLUMAB
     Indication: RENAL CELL CARCINOMA
     Route: 065

REACTIONS (6)
  - Hypopituitarism [Unknown]
  - Adrenocortical insufficiency acute [Unknown]
  - Blood pressure decreased [Unknown]
  - Interstitial lung disease [Unknown]
  - Vomiting [Unknown]
  - Acute kidney injury [Unknown]
